FAERS Safety Report 21119558 (Version 2)
Quarter: 2022Q3

REPORT INFORMATION
  Report Type: Spontaneous
  Country: US (occurrence: US)
  Receive Date: 20220722
  Receipt Date: 20220929
  Transmission Date: 20221027
  Serious: Yes (Other)
  Sender: FDA-Public Use
  Company Number: US-NOVOPROD-939395

PATIENT
  Sex: Male

DRUGS (3)
  1. OZEMPIC [Suspect]
     Active Substance: SEMAGLUTIDE
     Dosage: 0.5 MG
     Route: 058
     Dates: start: 2022, end: 20220710
  2. OZEMPIC [Suspect]
     Active Substance: SEMAGLUTIDE
     Indication: Product used for unknown indication
     Dosage: 0.25 MG
     Route: 058
     Dates: start: 20220524, end: 2022
  3. ASPIRIN [Suspect]
     Active Substance: ASPIRIN
     Indication: Product used for unknown indication
     Dosage: UNK
     Route: 058
     Dates: start: 2022, end: 2022

REACTIONS (5)
  - Pneumonia [Unknown]
  - Ventriculo-peritoneal shunt [Unknown]
  - Hiccups [Recovered/Resolved]
  - Ataxia [Unknown]
  - Headache [Unknown]

NARRATIVE: CASE EVENT DATE: 20220710
